FAERS Safety Report 4532509-4 (Version None)
Quarter: 2004Q4

REPORT INFORMATION
  Report Type: 
  Country: None (occurrence: None)
  Receive Date: 20041206
  Receipt Date: 20040920
  Transmission Date: 20050328
  Serious: No
  Sender: FDA-Public Use
  Company Number: USA040978717

PATIENT
  Age: 44 Year
  Sex: Male

DRUGS (4)
  1. CYMBALTA [Suspect]
     Indication: DEPRESSION
     Dosage: 30 MG/1 DAY
     Dates: start: 20040901
  2. COVERA-HS [Concomitant]
  3. PROTONIX [Concomitant]
  4. METHADONE HCL [Concomitant]

REACTIONS (1)
  - FEELING HOT [None]
